FAERS Safety Report 7607277-X (Version None)
Quarter: 2011Q3

REPORT INFORMATION
  Report Type: 
  Country: None (occurrence: None)
  Receive Date: 20110713
  Receipt Date: 20110708
  Transmission Date: 20111222
  Serious: Yes (Hospitalization, Other)
  Sender: FDA-Public Use
  Company Number: US-ACTELION-A-NJ2011-50549

PATIENT

DRUGS (9)
  1. ALDACTONE [Concomitant]
  2. ALBUTEROL SULFATE AUTOHALER [Concomitant]
  3. TAMBOCOR [Concomitant]
  4. LASIX [Concomitant]
  5. COLCHICINE [Concomitant]
  6. TRACLEER [Suspect]
     Indication: PULMONARY ARTERIAL HYPERTENSION
     Dosage: 125 MG, BID
     Route: 048
     Dates: start: 20080104
  7. PRILOSEC [Concomitant]
  8. ESTRACE [Concomitant]
  9. FLOLAN [Concomitant]

REACTIONS (1)
  - CATHETER SITE INFECTION [None]
